FAERS Safety Report 8395310-X (Version None)
Quarter: 2012Q2

REPORT INFORMATION
  Report Type: 
  Country: None (occurrence: None)
  Receive Date: 20120530
  Receipt Date: 20120523
  Transmission Date: 20120825
  Serious: Yes (Hospitalization)
  Sender: FDA-Public Use
  Company Number: GB-UCBSA-058081

PATIENT
  Sex: Female

DRUGS (1)
  1. CIMZIA [Suspect]
     Dates: start: 20110901

REACTIONS (2)
  - GASTROINTESTINAL CARCINOMA [None]
  - METASTASES TO CENTRAL NERVOUS SYSTEM [None]
